FAERS Safety Report 18299581 (Version 1)
Quarter: 2020Q3

REPORT INFORMATION
  Report Type: Spontaneous
  Country: US (occurrence: US)
  Receive Date: 20200922
  Receipt Date: 20200922
  Transmission Date: 20201103
  Serious: Yes (Other)
  Sender: FDA-Public Use
  Company Number: US-PURDUE-USA-2020-0167254

PATIENT
  Sex: Male

DRUGS (17)
  1. MS CONTIN [Suspect]
     Active Substance: MORPHINE SULFATE
     Indication: KNEE OPERATION
     Dosage: UNK
     Route: 048
  2. HYDROMORPHONE HCL ORAL SOLUTION (RHODES) [Suspect]
     Active Substance: HYDROMORPHONE HYDROCHLORIDE
     Indication: KNEE OPERATION
     Dosage: UNK
     Route: 048
  3. NORCO [Suspect]
     Active Substance: ACETAMINOPHEN\HYDROCODONE BITARTRATE
     Indication: KNEE OPERATION
     Dosage: 120 MG, UNK
     Route: 065
     Dates: start: 2010
  4. PALLADONE [Suspect]
     Active Substance: HYDROMORPHONE HYDROCHLORIDE
     Indication: KNEE OPERATION
     Dosage: UNK
     Route: 065
  5. TRAMADOL. [Suspect]
     Active Substance: TRAMADOL
     Indication: KNEE OPERATION
     Dosage: UNK
     Route: 048
  6. BUPRENORPHINE TRANSDERMAL PATCH (SIMILAR TO NDA 21?306) [Suspect]
     Active Substance: BUPRENORPHINE
     Indication: KNEE OPERATION
     Dosage: UNK
     Route: 062
  7. HYDROMORPHONE TABLET (RHODES) [Suspect]
     Active Substance: HYDROMORPHONE
     Indication: KNEE OPERATION
     Dosage: UNK
     Route: 048
  8. OXYCODONE/ ACETAMINOPHEN TABLETS [Suspect]
     Active Substance: ACETAMINOPHEN\OXYCODONE HYDROCHLORIDE
     Indication: KNEE OPERATION
     Dosage: UNK
     Route: 048
  9. OXYFAST [Suspect]
     Active Substance: OXYCODONE
     Indication: KNEE OPERATION
     Dosage: UNK
     Route: 065
  10. OXYCONTIN [Suspect]
     Active Substance: OXYCODONE HYDROCHLORIDE
     Indication: KNEE OPERATION
     Dosage: UNK
     Route: 048
  11. OXYCODONE HCL CR TABLETS (SIMILAR TO NDA 22?272) [Suspect]
     Active Substance: OXYCODONE HYDROCHLORIDE
     Indication: KNEE OPERATION
     Dosage: UNK
     Route: 048
  12. OXYCODONE HCL TABLETS (RHODES 91?490) [Suspect]
     Active Substance: OXYCODONE HYDROCHLORIDE
     Indication: KNEE OPERATION
     Dosage: UNK
     Route: 048
  13. PERCOCET                           /00446701/ [Suspect]
     Active Substance: ACETAMINOPHEN\OXYCODONE HYDROCHLORIDE\OXYCODONE TEREPHTHALATE
     Indication: KNEE OPERATION
     Dosage: 120 MG, UNK
     Route: 065
     Dates: start: 2010
  14. DILAUDID [Suspect]
     Active Substance: HYDROMORPHONE HYDROCHLORIDE
     Indication: KNEE OPERATION
     Dosage: UNK
     Route: 048
  15. HYSINGLA ER [Suspect]
     Active Substance: HYDROCODONE BITARTRATE
     Indication: KNEE OPERATION
     Dosage: UNK
     Route: 048
  16. HYDROCODONE BITARTRATE AND ACETAMINOPHEN [Suspect]
     Active Substance: ACETAMINOPHEN\HYDROCODONE BITARTRATE
     Indication: KNEE OPERATION
     Dosage: UNK
     Route: 048
  17. BUTRANS [Suspect]
     Active Substance: BUPRENORPHINE
     Indication: KNEE OPERATION
     Dosage: UNK
     Route: 062

REACTIONS (9)
  - Overdose [Unknown]
  - Drug dependence [Unknown]
  - Depression [Unknown]
  - Hepatic failure [Unknown]
  - Mental impairment [Unknown]
  - Emotional distress [Unknown]
  - Anger [Unknown]
  - Renal failure [Unknown]
  - Pain [Unknown]
